FAERS Safety Report 5814216-0 (Version None)
Quarter: 2008Q3

REPORT INFORMATION
  Report Type: 
  Country: None (occurrence: None)
  Receive Date: 20080715
  Receipt Date: 20080701
  Transmission Date: 20090109
  Serious: Yes (Hospitalization, Other)
  Sender: FDA-Public Use
  Company Number: 2008BI012147

PATIENT
  Age: 72 Year
  Sex: Female
  Weight: 53.5244 kg

DRUGS (6)
  1. AVONEX [Suspect]
     Indication: MULTIPLE SCLEROSIS
     Dosage: 30 UG;QW;IM
     Route: 030
     Dates: start: 20010101, end: 20040301
  2. AVONEX [Suspect]
     Indication: MULTIPLE SCLEROSIS
     Dosage: 30 UG;QW;IM
     Route: 030
     Dates: start: 20060928, end: 20060101
  3. AVONEX [Suspect]
     Indication: MULTIPLE SCLEROSIS
     Dosage: 30 UG;QW;IM
     Route: 030
     Dates: start: 20060101
  4. LOPRESSOR [Concomitant]
  5. NORVASC [Concomitant]
  6. HYDROCHLOROTHIAZIDE [Concomitant]

REACTIONS (18)
  - DENTAL CARIES [None]
  - DEPRESSION [None]
  - DISEASE PROGRESSION [None]
  - FATIGUE [None]
  - GAIT DISTURBANCE [None]
  - GASTRIC ULCER [None]
  - GASTRITIS [None]
  - GASTROINTESTINAL MOTILITY DISORDER [None]
  - INFLUENZA LIKE ILLNESS [None]
  - INTERVERTEBRAL DISC PROTRUSION [None]
  - LENTIGO MALIGNA STAGE UNSPECIFIED [None]
  - MALIGNANT MELANOMA IN SITU [None]
  - MULTIPLE SCLEROSIS [None]
  - MUSCLE ATROPHY [None]
  - OESOPHAGITIS [None]
  - OXYGEN SATURATION DECREASED [None]
  - WEIGHT DECREASED [None]
  - WRONG TECHNIQUE IN DRUG USAGE PROCESS [None]
